FAERS Safety Report 8119123-9 (Version None)
Quarter: 2012Q1

REPORT INFORMATION
  Report Type: 
  Country: None (occurrence: None)
  Receive Date: 20120207
  Receipt Date: 20120207
  Transmission Date: 20120608
  Serious: Yes (Hospitalization)
  Sender: FDA-Public Use
  Company Number: None

PATIENT
  Age: 24 Year
  Sex: Female
  Weight: 58.967 kg

DRUGS (2)
  1. CABERGOLINE [Suspect]
     Indication: GALACTORRHOEA
     Route: 048
  2. BIRTH CONTROL [Concomitant]

REACTIONS (4)
  - VISUAL IMPAIRMENT [None]
  - EXTRAPYRAMIDAL DISORDER [None]
  - PSYCHOSOMATIC DISEASE [None]
  - DYSTONIA [None]
